FAERS Safety Report 5273312-X (Version None)
Quarter: 2007Q1

REPORT INFORMATION
  Report Type: 
  Country: None (occurrence: None)
  Receive Date: 20070322
  Receipt Date: 20070312
  Transmission Date: 20070707
  Serious: Yes (Disabling, Other)
  Sender: FDA-Public Use
  Company Number: JP-GILEAD-2005-0008872

PATIENT
  Sex: Male

DRUGS (21)
  1. VIREAD [Suspect]
     Indication: HIV INFECTION
     Route: 048
     Dates: start: 20020328, end: 20040113
  2. KALETRA [Suspect]
     Indication: HIV INFECTION
     Route: 048
     Dates: start: 20020328, end: 20040924
  3. KALETRA [Suspect]
     Route: 048
     Dates: start: 20011022, end: 20020311
  4. ZIAGEN [Suspect]
     Indication: HIV INFECTION
     Route: 048
     Dates: start: 20011022, end: 20020311
  5. ZIAGEN [Suspect]
     Route: 048
     Dates: start: 20020328, end: 20041103
  6. ZIAGEN [Suspect]
     Route: 048
     Dates: start: 20050318
  7. DIFLUCAN [Suspect]
     Indication: ORAL CANDIDIASIS
     Dates: start: 20020724
  8. VIRACEPT [Suspect]
     Indication: HIV INFECTION
     Route: 048
     Dates: start: 20010806, end: 20011021
  9. VIRACEPT [Suspect]
     Route: 048
     Dates: start: 20040927, end: 20041103
  10. EPIVIR [Suspect]
     Indication: HIV INFECTION
     Route: 048
     Dates: start: 20010806, end: 20011021
  11. EPIVIR [Suspect]
     Route: 048
     Dates: start: 20040927, end: 20041103
  12. ZERIT [Suspect]
     Indication: HIV INFECTION
     Route: 048
     Dates: start: 20010806, end: 20020311
  13. VIRAMUNE [Suspect]
     Indication: HIV INFECTION
     Route: 048
     Dates: start: 20040510, end: 20040914
  14. PEG-INTRON [Suspect]
     Indication: HEPATITIS C
     Dosage: 100 MICRO G/KG
     Route: 058
     Dates: start: 20041213, end: 20050117
  15. RIBAVIRIN [Suspect]
     Indication: HEPATITIS C
     Route: 048
     Dates: start: 20041213, end: 20050114
  16. RIBAVIRIN [Suspect]
     Route: 048
     Dates: start: 20050115, end: 20050117
  17. NORVIR [Suspect]
     Indication: HIV INFECTION
     Route: 048
     Dates: start: 20050216
  18. STOCRIN [Suspect]
     Indication: HIV INFECTION
     Route: 048
     Dates: start: 20050216, end: 20050328
  19. LEXIVA [Suspect]
     Indication: HIV INFECTION
     Route: 048
     Dates: start: 20050216
  20. EPZICOM [Suspect]
     Indication: HIV INFECTION
     Dates: start: 20050216, end: 20050317
  21. LOXONIN [Concomitant]
     Indication: HIV INFECTION
     Dates: start: 20020819

REACTIONS (2)
  - NEPHRITIS INTERSTITIAL [None]
  - NEPHROTIC SYNDROME [None]
